FAERS Safety Report 9229625 (Version 1)
Quarter: 2013Q2

REPORT INFORMATION
  Report Type: Spontaneous
  Country: US (occurrence: US)
  Receive Date: 20130414
  Receipt Date: 20130414
  Transmission Date: 20140414
  Serious: Yes (Other)
  Sender: FDA-Public Use
  Company Number: US-AMGEN-USASP2013025153

PATIENT
  Age: 34 Year
  Sex: Female
  Weight: 104.31 kg

DRUGS (5)
  1. ENBREL [Suspect]
     Indication: PRODUCT USED FOR UNKNOWN INDICATION
     Dosage: 50 MG, QWK
     Route: 058
  2. CYMBALTA [Concomitant]
     Dosage: 20 MG, UNK
  3. NORCO [Concomitant]
     Dosage: 10-325 MG
  4. IBU [Concomitant]
     Dosage: 400 MG, UNK
  5. HUMIRA [Concomitant]
     Dosage: 40 MG/0.8

REACTIONS (1)
  - Injection site cellulitis [Unknown]
